FAERS Safety Report 8611533 (Version 2)
Quarter: 2012Q4

REPORT INFORMATION
  Report Type: 
  Country: US (occurrence: US)
  Receive Date: 20120613
  Receipt Date: 20120917
  Transmission Date: 20130627
  Serious: Yes (Other)
  Sender: FDA-Public Use
  Company Number: US-US-EMD SERONO, INC.-7138138

PATIENT
  Age: 43 None
  Sex: Female

DRUGS (4)
  1. REBIF [Suspect]
     Indication: PRODUCT USED FOR UNKNOWN INDICATION
     Route: 058
     Dates: start: 20110606
  2. ALEVE [Concomitant]
     Indication: PREMEDICATION
  3. GLUCOPHAGE [Concomitant]
     Indication: DIABETES MELLITUS
  4. MACRODANTIN [Concomitant]
     Indication: URINARY TRACT INFECTION

REACTIONS (6)
  - Nephrolithiasis [Not Recovered/Not Resolved]
  - Knee arthroplasty [Not Recovered/Not Resolved]
  - Herpes zoster [Unknown]
  - Urinary tract infection [Not Recovered/Not Resolved]
  - Influenza like illness [Not Recovered/Not Resolved]
  - Injection site erythema [Not Recovered/Not Resolved]
